FAERS Safety Report 5822700-9 (Version None)
Quarter: 2008Q3

REPORT INFORMATION
  Report Type: 
  Country: None (occurrence: None)
  Receive Date: 20080718
  Receipt Date: 20080206
  Transmission Date: 20090109
  Serious: Yes (Other)
  Sender: FDA-Public Use
  Company Number: 2008PV000008

PATIENT
  Age: 44 Year
  Sex: Female

DRUGS (1)
  1. DEPODUR [Suspect]
     Indication: PROCEDURAL PAIN
     Dosage: 10 MG;X1;ED
     Route: 008

REACTIONS (1)
  - RESPIRATORY DEPRESSION [None]
